FAERS Safety Report 17971671 (Version 1)
Quarter: 2020Q3

REPORT INFORMATION
  Report Type: Spontaneous
  Country: DE (occurrence: DE)
  Receive Date: 20200701
  Receipt Date: 20200701
  Transmission Date: 20201103
  Serious: Yes (Other)
  Sender: FDA-Public Use
  Company Number: NVSC2020DE185731

PATIENT
  Age: 89 Year
  Sex: Female

DRUGS (1)
  1. QUETIAPIN ? 1 A PHARMA 50 MG FILMTABLETTEN [Suspect]
     Active Substance: QUETIAPINE FUMARATE
     Indication: DEPRESSION
     Dosage: UNK, BID (1?0?1)
     Route: 065
     Dates: start: 202006

REACTIONS (4)
  - Daydreaming [Unknown]
  - Confusional state [Unknown]
  - Product use in unapproved indication [Unknown]
  - Hallucination [Unknown]

NARRATIVE: CASE EVENT DATE: 202006
